FAERS Safety Report 22246385 (Version 10)
Quarter: 2024Q2

REPORT INFORMATION
  Report Type: Spontaneous
  Country: US (occurrence: US)
  Receive Date: 20230424
  Receipt Date: 20240503
  Transmission Date: 20240715
  Serious: Yes (Other)
  Sender: FDA-Public Use
  Company Number: US-PFIZER INC-2019273996

PATIENT
  Age: 77 Year
  Sex: Male
  Weight: 66.576 kg

DRUGS (7)
  1. XALKORI [Suspect]
     Active Substance: CRIZOTINIB
     Indication: Lung neoplasm malignant
     Dosage: 250 MG, DAILY (TAKE 250MG PO ONCE DAILY ALTERNATING EVERY OTHER DAY 250MG TWICE DAILY)
     Route: 048
     Dates: start: 2017
  2. XALKORI [Suspect]
     Active Substance: CRIZOTINIB
     Dosage: 250 MG, 2X/DAY (TAKE 250MG PO ONCE DAILY ALTERNATING EVERY OTHER DAY 250MG TWICE DAILY)
     Route: 048
  3. XALKORI [Suspect]
     Active Substance: CRIZOTINIB
     Dosage: 250 MG(1 CAPSULE TWICE DAILY OR AS DIRECTED,CURRENTLY DOING 1 EVERY 2 DAYS AND 1 TWICE EVERY 2 DAYS)
  4. XALKORI [Suspect]
     Active Substance: CRIZOTINIB
     Dosage: (1 CAPSULE ONCE OR TWICE DAILY AS DIRECTED (CURRENTLY DOING 1 EVERY 2DAYS AND 1 TWICE EVERY 2 DAYS))
  5. XALKORI [Suspect]
     Active Substance: CRIZOTINIB
     Dosage: (ALTERNATING DAYS DOSING)  CAP PO QOD ALTERNATING 1 CAP BID QOD
     Route: 048
  6. XALKORI [Suspect]
     Active Substance: CRIZOTINIB
     Dosage: 250 MG, ALTERNATE DAY
  7. XALKORI [Suspect]
     Active Substance: CRIZOTINIB
     Dosage: 250 MG 1 D 500 MG NEXT DAY

REACTIONS (12)
  - Renal failure [Recovered/Resolved]
  - Second primary malignancy [Not Recovered/Not Resolved]
  - Neoplasm malignant [Not Recovered/Not Resolved]
  - Confusional state [Not Recovered/Not Resolved]
  - Abdominal discomfort [Not Recovered/Not Resolved]
  - Nausea [Not Recovered/Not Resolved]
  - Vomiting [Not Recovered/Not Resolved]
  - Neoplasm progression [Not Recovered/Not Resolved]
  - Neoplasm recurrence [Recovered/Resolved]
  - Liver function test abnormal [Recovered/Resolved]
  - Intentional product use issue [Unknown]
  - Intentional product misuse [Unknown]
